FAERS Safety Report 13477401 (Version 1)
Quarter: 2017Q2

REPORT INFORMATION
  Report Type: Spontaneous
  Country: US (occurrence: US)
  Receive Date: 20170425
  Receipt Date: 20170425
  Transmission Date: 20170830
  Serious: Yes (Disabling)
  Sender: FDA-Public Use
  Company Number: None

PATIENT
  Age: 54 Year
  Sex: Female
  Weight: 99 kg

DRUGS (7)
  1. CREST PRO-HEALTH (CETYLPYRIDINIUM CHLORIDE) [Suspect]
     Active Substance: CETYLPYRIDINIUM CHLORIDE
     Indication: PROPHYLAXIS
     Dosage: ?          QUANTITY:20 ML;?
     Route: 048
     Dates: start: 20170424, end: 20170424
  2. PLAVIX [Concomitant]
     Active Substance: CLOPIDOGREL BISULFATE
  3. AMBIEN [Concomitant]
     Active Substance: ZOLPIDEM TARTRATE
  4. LIPITOR [Concomitant]
     Active Substance: ATORVASTATIN CALCIUM
  5. LISINOPRIL. [Concomitant]
     Active Substance: LISINOPRIL
  6. MULTIVITAMIN [Concomitant]
     Active Substance: VITAMINS
  7. TYLENOL [Concomitant]
     Active Substance: ACETAMINOPHEN

REACTIONS (5)
  - Dysphagia [None]
  - Oral pain [None]
  - Hypoaesthesia oral [None]
  - Lip swelling [None]
  - Product label issue [None]

NARRATIVE: CASE EVENT DATE: 20170425
